FAERS Safety Report 4791598-2 (Version None)
Quarter: 2005Q4

REPORT INFORMATION
  Report Type: 
  Country: None (occurrence: None)
  Receive Date: 20051007
  Receipt Date: 20050520
  Transmission Date: 20060501
  Serious: No
  Sender: FDA-Public Use
  Company Number: US-BRISTOL-MYERS SQUIBB COMPANY-12977260

PATIENT
  Age: 72 Year
  Sex: Male
  Weight: 110 kg

DRUGS (11)
  1. AVAPRO [Suspect]
     Indication: HYPERTENSION
     Dates: end: 20050516
  2. ASPIRIN [Concomitant]
  3. COUMADIN [Concomitant]
  4. FELODIPINE [Concomitant]
  5. HYDROCHLOROTHIAZIDE [Concomitant]
  6. NPH INSULIN [Concomitant]
  7. LOVASTATIN [Concomitant]
  8. RANITIDINE [Concomitant]
  9. REGULAR INSULIN [Concomitant]
  10. DOXASIN [Concomitant]
  11. FUROSEMIDE [Concomitant]

REACTIONS (2)
  - NECK PAIN [None]
  - SHOULDER PAIN [None]
